FAERS Safety Report 17576559 (Version 1)
Quarter: 2020Q1

REPORT INFORMATION
  Report Type: Spontaneous
  Country: SE (occurrence: SE)
  Receive Date: 20200324
  Receipt Date: 20200324
  Transmission Date: 20200409
  Serious: Yes (Other)
  Sender: FDA-Public Use
  Company Number: SE-MYLANLABS-2020M1029376

PATIENT
  Age: 39 Year
  Sex: Male

DRUGS (13)
  1. ETOPOSIDE. [Suspect]
     Active Substance: ETOPOSIDE
     Indication: METASTASIS
     Dosage: DOSE REDUCED VERSION OF THE HIT 2000 PROTOCOL
     Route: 065
     Dates: start: 2010
  2. GABAPENTIN. [Concomitant]
     Active Substance: GABAPENTIN
     Indication: PAIN
     Route: 065
     Dates: start: 2011
  3. MORPHINE HYDROCHLORIDE [Concomitant]
     Active Substance: MORPHINE HYDROCHLORIDE
     Indication: PAIN
     Dosage: 60 MILLIGRAM, QD
     Route: 048
     Dates: start: 2011
  4. MORPHINE HYDROCHLORIDE [Concomitant]
     Active Substance: MORPHINE HYDROCHLORIDE
     Indication: PAIN
     Dosage: UNK
     Route: 042
     Dates: start: 2011
  5. KETAMINE [Concomitant]
     Active Substance: KETAMINE
     Indication: PAIN
     Dosage: UNK
     Route: 048
     Dates: start: 2011
  6. CYCLOPHOSPHAMIDE. [Suspect]
     Active Substance: CYCLOPHOSPHAMIDE
     Indication: METASTASIS
     Dosage: DOSE REDUCED VERSION OF THE HIT 2000 PROTOCOL
     Route: 065
     Dates: start: 2010
  7. CARBOPLATIN. [Suspect]
     Active Substance: CARBOPLATIN
     Indication: METASTASIS
     Dosage: DOSE REDUCED VERSION OF THE HIT 2000 PROTOCOL
     Route: 065
     Dates: start: 2010
  8. METHADONE [Concomitant]
     Active Substance: METHADONE HYDROCHLORIDE
     Indication: PAIN
     Dosage: 90 MILLIGRAM, QD
     Route: 050
     Dates: start: 2011
  9. METHOTREXATE. [Suspect]
     Active Substance: METHOTREXATE
     Indication: METASTASIS
     Dosage: DOSE REDUCED VERSION OF THE HIT 2000 PROTOCOL
     Route: 065
     Dates: start: 2010
  10. VINCRISTINE [Suspect]
     Active Substance: VINCRISTINE
     Indication: MEDULLOBLASTOMA
     Dosage: DOSE-REDUCED VERSION OF THE HIT 2000 PROTOCOL
     Route: 065
     Dates: start: 2010
  11. TEMOZOLOMIDE. [Suspect]
     Active Substance: TEMOZOLOMIDE
     Indication: MEDULLOBLASTOMA
     Dosage: UNK
     Route: 065
     Dates: start: 2009
  12. BETAMETHASONE. [Concomitant]
     Active Substance: BETAMETHASONE
     Indication: PAIN
     Dosage: 9 MILLIGRAM, QD
     Route: 065
     Dates: start: 2011
  13. KETAMINE [Concomitant]
     Active Substance: KETAMINE
     Indication: PAIN
     Route: 048
     Dates: start: 2011

REACTIONS (9)
  - Therapeutic response decreased [Unknown]
  - Hepatomegaly [Recovering/Resolving]
  - Bone marrow failure [Recovering/Resolving]
  - Adverse drug reaction [Unknown]
  - Bone marrow infiltration [Recovering/Resolving]
  - Product use in unapproved indication [Recovered/Resolved]
  - Splenomegaly [Recovering/Resolving]
  - Extramedullary haemopoiesis [Recovering/Resolving]
  - Medulloblastoma recurrent [Recovering/Resolving]

NARRATIVE: CASE EVENT DATE: 2010
